FAERS Safety Report 25093608 (Version 1)
Quarter: 2025Q1

REPORT INFORMATION
  Report Type: Spontaneous
  Country: CH (occurrence: CH)
  Receive Date: 20250319
  Receipt Date: 20250319
  Transmission Date: 20250408
  Serious: Yes (Hospitalization, Other)
  Sender: BRISTOL-MYERS SQUIBB COMPANY
  Company Number: None

PATIENT
  Age: 76 Year
  Sex: Female
  Weight: 43.7 kg

DRUGS (11)
  1. YERVOY [Suspect]
     Active Substance: IPILIMUMAB
     Indication: Colon cancer
     Route: 040
     Dates: start: 20240918, end: 20240918
  2. OPDIVO [Suspect]
     Active Substance: NIVOLUMAB
     Indication: Colon cancer
     Route: 040
     Dates: start: 20240918, end: 20241003
  3. METAMIZOL [Suspect]
     Active Substance: METAMIZOLE SODIUM
     Indication: Pain
     Route: 048
     Dates: start: 2020, end: 202411
  4. METAMIZOL [Suspect]
     Active Substance: METAMIZOLE SODIUM
     Dosage: 500 - 1000 MG/D SINCE MID-NOVEMBER, STOP ON 26-NOV-2024
     Route: 048
     Dates: start: 202411, end: 20241126
  5. METAMIZOLE [Suspect]
     Active Substance: METAMIZOLE
     Indication: Postoperative analgesia
     Dosage: GAIN AFTER SURGERY FOR ANALGESIA: MINALGIN 500 MG 2-2-2 (TOTAL 3000 MG) FROM 19 TO 20-DEC-2024
     Route: 048
     Dates: start: 20241219, end: 20241220
  6. SIMVASTATIN [Concomitant]
     Active Substance: SIMVASTATIN
     Indication: Dyslipidaemia
     Route: 048
  7. AMLODIPINE [Concomitant]
     Active Substance: AMLODIPINE BESYLATE
     Indication: Hypertension
     Route: 048
  8. JANUMET [Concomitant]
     Active Substance: METFORMIN HYDROCHLORIDE\SITAGLIPTIN PHOSPHATE
     Indication: Diabetes mellitus
     Dosage: 100/1000MG 1X/D (STOP ON 14-OCT-2024 AT NORMAL GLUCOSE LEVELS AFTER SEVERE WEIGHT LOSS)
     Route: 048
     Dates: end: 20241014
  9. PREDNISONE [Concomitant]
     Active Substance: PREDNISONE
     Indication: Immune-mediated hepatitis
     Dates: start: 20241127, end: 20241129
  10. PREDNISONE [Concomitant]
     Active Substance: PREDNISONE
     Dates: start: 20241127, end: 20241129
  11. PREDNISONE [Concomitant]
     Active Substance: PREDNISONE
     Dates: start: 202410

REACTIONS (4)
  - Agranulocytosis [Recovered/Resolved]
  - Immune-mediated hepatitis [Recovered/Resolved]
  - Immune-mediated enterocolitis [Recovered/Resolved]
  - Immune-mediated cholangitis [Recovered/Resolved]

NARRATIVE: CASE EVENT DATE: 20241126
